FAERS Safety Report 15000471 (Version 1)
Quarter: 2018Q2

REPORT INFORMATION
  Report Type: Spontaneous
  Country: JP (occurrence: JP)
  Receive Date: 20180612
  Receipt Date: 20180612
  Transmission Date: 20180711
  Serious: Yes (Death)
  Sender: FDA-Public Use
  Company Number: JP-SHIONOGI, INC-2018001040

PATIENT
  Age: 75 Year
  Sex: Male
  Weight: 45 kg

DRUGS (5)
  1. MORPHINE HYDROCHLORIDE [Concomitant]
     Active Substance: MORPHINE HYDROCHLORIDE
     Dosage: 40 MG, QD
     Route: 058
     Dates: start: 20180511
  2. MS CONTIN [Concomitant]
     Active Substance: MORPHINE SULFATE
     Dosage: 10 MG, BID
     Route: 048
     Dates: start: 20180427, end: 20180508
  3. SYMPROIC [Suspect]
     Active Substance: NALDEMEDINE
     Indication: CONSTIPATION
     Dosage: 0.2 MG, QD
     Route: 048
     Dates: start: 20180510, end: 20180515
  4. MORPHINE HYDROCHLORIDE [Concomitant]
     Active Substance: MORPHINE HYDROCHLORIDE
     Dosage: 20 MG, QD
     Route: 058
     Dates: start: 20180509
  5. OPSO [Concomitant]
     Active Substance: MORPHINE HYDROCHLORIDE
     Dosage: 5 MG, QD
     Route: 048
     Dates: start: 20180427, end: 20180508

REACTIONS (2)
  - Bladder cancer [Fatal]
  - Rash [Recovering/Resolving]

NARRATIVE: CASE EVENT DATE: 20180515
